FAERS Safety Report 7522325-3 (Version None)
Quarter: 2011Q2

REPORT INFORMATION
  Report Type: 
  Country: None (occurrence: None)
  Receive Date: 20110603
  Receipt Date: 20110520
  Transmission Date: 20111010
  Serious: Yes (Other)
  Sender: FDA-Public Use
  Company Number: PHHY2011FR43915

PATIENT
  Sex: Female

DRUGS (2)
  1. PROSTAGLANDINS [Suspect]
  2. METHERGINE [Suspect]

REACTIONS (4)
  - FIBROMA [None]
  - SEPTIC SHOCK [None]
  - RENAL DISORDER [None]
  - TRANSPLANT REJECTION [None]
